FAERS Safety Report 12682152 (Version 2)
Quarter: 2016Q4

REPORT INFORMATION
  Report Type: Spontaneous
  Country: RU (occurrence: RU)
  Receive Date: 20160824
  Receipt Date: 20161027
  Transmission Date: 20170207
  Serious: Yes (Other)
  Sender: FDA-Public Use
  Company Number: RU-BAYER-2016-160111

PATIENT
  Age: 37 Year
  Sex: Female

DRUGS (1)
  1. MIRENA [Suspect]
     Active Substance: LEVONORGESTREL
     Dosage: 20 MCG/24HR, CONT
     Route: 015
     Dates: end: 201608

REACTIONS (11)
  - Blood glucose increased [Not Recovered/Not Resolved]
  - Oxygen saturation decreased [Recovered/Resolved]
  - Ovarian cyst [Recovered/Resolved]
  - Weight increased [Not Recovered/Not Resolved]
  - Urethral pain [Recovered/Resolved]
  - Red blood cell sedimentation rate increased [Recovered/Resolved]
  - Thrombocytopenia [Recovered/Resolved]
  - Therapeutic response unexpected [None]
  - Therapeutic response unexpected [Recovered/Resolved]
  - Intentional medical device removal by patient [None]
  - Increased appetite [Recovered/Resolved]

NARRATIVE: CASE EVENT DATE: 201509
